FAERS Safety Report 8171323-8 (Version None)
Quarter: 2012Q1

REPORT INFORMATION
  Report Type: 
  Country: None (occurrence: None)
  Receive Date: 20120228
  Receipt Date: 20120222
  Transmission Date: 20120608
  Serious: Yes (Other)
  Sender: FDA-Public Use
  Company Number: US-ABBOTT-12P-163-0907680-00

PATIENT
  Sex: Male

DRUGS (3)
  1. LUPRON DEPOT [Suspect]
     Indication: PROSTATE CANCER
  2. CARBOPLATIN [Suspect]
     Indication: PROSTATE CANCER
  3. ETOPOSIDE [Suspect]
     Indication: PROSTATE CANCER

REACTIONS (4)
  - NEUROENDOCRINE TUMOUR [None]
  - PROSTATE CANCER [None]
  - DRUG INEFFECTIVE [None]
  - PROSTATIC SPECIFIC ANTIGEN INCREASED [None]
